FAERS Safety Report 7555822-5 (Version None)
Quarter: 2011Q2

REPORT INFORMATION
  Report Type: 
  Country: None (occurrence: None)
  Receive Date: 20110618
  Receipt Date: 20110614
  Transmission Date: 20111010
  Serious: Yes (Life-Threatening, Other)
  Sender: FDA-Public Use
  Company Number: JP-BAYER-2011-017547

PATIENT
  Age: 26 Year
  Sex: Female
  Weight: 45 kg

DRUGS (9)
  1. CLOTIAZEPAM [Interacting]
     Indication: DEPRESSION
     Dosage: DAILY DOSE 5 MG
     Route: 048
  2. PAXIL [Concomitant]
     Route: 048
  3. ZOLOFT [Concomitant]
     Route: 048
  4. SEPAZON [Interacting]
     Indication: DEPRESSION
     Dosage: DAILY DOSE 2 MG
     Route: 048
  5. DIAZEPAM [Interacting]
     Indication: DEPRESSION
     Dosage: DAILY DOSE 5 MG
     Route: 048
  6. AJIRERU [Concomitant]
     Route: 065
  7. YAZ [Suspect]
     Indication: DYSMENORRHOEA
     Dosage: 1 DF, ONCE
     Route: 048
     Dates: start: 20110213, end: 20110219
  8. AMOXAPINE [Interacting]
     Indication: DEPRESSION
     Dosage: DAILY DOSE 25 MG
     Route: 048
     Dates: end: 20110219
  9. LORAZEPAM [Concomitant]
     Route: 048

REACTIONS (1)
  - SUICIDE ATTEMPT [None]
